FAERS Safety Report 18043704 (Version 4)
Quarter: 2021Q3

REPORT INFORMATION
  Report Type: Spontaneous
  Country: US (occurrence: US)
  Receive Date: 20200720
  Receipt Date: 20210921
  Transmission Date: 20211014
  Serious: No
  Sender: FDA-Public Use
  Company Number: US-GLAXOSMITHKLINE-US2020AMR135785

PATIENT
  Sex: Female

DRUGS (4)
  1. ZEJULA [Suspect]
     Active Substance: NIRAPARIB
     Indication: OVARIAN CANCER
     Dosage: 3 DF(CAPSULE), QD
     Route: 048
     Dates: start: 20200309
  2. ZEJULA [Suspect]
     Active Substance: NIRAPARIB
     Dosage: 100 MG, QD
  3. ZEJULA [Suspect]
     Active Substance: NIRAPARIB
     Dosage: 100 MG, QOD  (100MG ALTERNATING WITH 200MG EVERY OTHER DAY)
  4. ZEJULA [Suspect]
     Active Substance: NIRAPARIB
     Dosage: 150 MG

REACTIONS (3)
  - Adverse drug reaction [Unknown]
  - Haemoglobin decreased [Unknown]
  - Hypertension [Unknown]
